FAERS Safety Report 4296048-0 (Version None)
Quarter: 2004Q1

REPORT INFORMATION
  Report Type: 
  Country: None (occurrence: None)
  Receive Date: 20040212
  Receipt Date: 20040206
  Transmission Date: 20041129
  Serious: Yes (Other)
  Sender: FDA-Public Use
  Company Number: US-JNJFOC-20030704508

PATIENT
  Age: 38 Year
  Sex: Male
  Weight: 73.0291 kg

DRUGS (4)
  1. REMICADE [Suspect]
     Indication: CROHN'S DISEASE
     Dosage: 350 MG, 1 IN 1 DAY, INTRAVENOUS
     Route: 042
     Dates: start: 20030616
  2. REMICADE [Suspect]
  3. IMURAN [Concomitant]
  4. SYNTHROID [Concomitant]

REACTIONS (7)
  - ARTHRALGIA [None]
  - AUTOIMMUNE HEPATITIS [None]
  - HEPATIC FIBROSIS [None]
  - HEPATIC NECROSIS [None]
  - JAUNDICE [None]
  - MUSCULOSKELETAL STIFFNESS [None]
  - RASH [None]
